FAERS Safety Report 5717397-2 (Version None)
Quarter: 2008Q2

REPORT INFORMATION
  Report Type: 
  Country: None (occurrence: None)
  Receive Date: 20080424
  Receipt Date: 20080424
  Transmission Date: 20081010
  Serious: Yes (Hospitalization)
  Sender: FDA-Public Use
  Company Number: None

PATIENT
  Age: 61 Year
  Sex: Female

DRUGS (8)
  1. INTEGRILIN [Suspect]
     Dosage: 10 MG BOLUS THEN 9MG   IV
     Route: 042
     Dates: start: 20060716, end: 20060716
  2. ASPIRIN [Concomitant]
  3. PLAVIX [Concomitant]
  4. ZANTAC [Concomitant]
  5. QUINAPRIL [Concomitant]
  6. COREG [Concomitant]
  7. ATORVASTATIN [Concomitant]
  8. HEPARIN [Concomitant]

REACTIONS (2)
  - HAEMOPTYSIS [None]
  - POST PROCEDURAL COMPLICATION [None]
